FAERS Safety Report 9889189 (Version 1)
Quarter: 2014Q1

REPORT INFORMATION
  Report Type: Spontaneous
  Country: PL (occurrence: PL)
  Receive Date: 20140211
  Receipt Date: 20140211
  Transmission Date: 20141002
  Serious: Yes (Hospitalization, Other)
  Sender: FDA-Public Use
  Company Number: PHHY2014PL016353

PATIENT
  Age: 42 Year
  Sex: Male
  Weight: 100 kg

DRUGS (3)
  1. EXTAVIA [Suspect]
     Indication: MULTIPLE SCLEROSIS RELAPSE
     Dosage: 250 UG, EVERY 02 DAYS
     Route: 058
     Dates: start: 201103, end: 201308
  2. GABAPENTIN [Concomitant]
     Indication: TRIGEMINAL NEURALGIA
     Dosage: 900 MG, DAILY
     Route: 048
     Dates: start: 2011
  3. CONVULEX//VALPROIC ACID [Concomitant]
     Indication: TRIGEMINAL NEURALGIA
     Dosage: 3000 UG, DAILY
     Route: 048
     Dates: start: 2011

REACTIONS (2)
  - Osteitis [Recovered/Resolved]
  - Pain in extremity [Unknown]
